FAERS Safety Report 25688682 (Version 1)
Quarter: 2025Q3

REPORT INFORMATION
  Report Type: Spontaneous
  Country: US (occurrence: US)
  Receive Date: 20250818
  Receipt Date: 20250818
  Transmission Date: 20251020
  Serious: No
  Sender: ALEXION PHARMACEUTICALS
  Company Number: US-ASTRAZENECA-202508USA011852US

PATIENT
  Age: 54 Year
  Sex: Female

DRUGS (3)
  1. SYMBICORT [Suspect]
     Active Substance: BUDESONIDE\FORMOTEROL FUMARATE DIHYDRATE
     Route: 065
  2. DUPIXENT [Suspect]
     Active Substance: DUPILUMAB
     Route: 065
  3. ROSUVASTATIN CALCIUM [Suspect]
     Active Substance: ROSUVASTATIN CALCIUM
     Route: 065

REACTIONS (11)
  - Rash macular [Unknown]
  - Nervousness [Unknown]
  - Chest pain [Unknown]
  - Wheezing [Unknown]
  - Gait disturbance [Unknown]
  - Goitre [Unknown]
  - Feeling jittery [Unknown]
  - Pulmonary pain [Unknown]
  - Dyspnoea [Unknown]
  - Injection site erythema [Unknown]
  - Arthralgia [Unknown]
